FAERS Safety Report 19799357 (Version 1)
Quarter: 2021Q3

REPORT INFORMATION
  Report Type: Report from Study
  Country: ES (occurrence: ES)
  Receive Date: 20210907
  Receipt Date: 20210907
  Transmission Date: 20211014
  Serious: Yes (Hospitalization, Other)
  Sender: FDA-Public Use
  Company Number: ES-TAKEDA-2021TUS054177

PATIENT
  Age: 13 Year
  Sex: Male
  Weight: 70 kg

DRUGS (3)
  1. IDURSULFASE [Suspect]
     Active Substance: IDURSULFASE
     Indication: MUCOPOLYSACCHARIDOSIS II
     Dosage: 35 MILLIGRAM, 1/WEEK
     Route: 042
     Dates: start: 20100920
  2. KETOTIFEN [Concomitant]
     Active Substance: KETOTIFEN
     Indication: UPPER RESPIRATORY TRACT INFECTION
     Dosage: 5 MILLIGRAM, Q12H
     Route: 048
     Dates: start: 20210823
  3. IDURSULFASE [Suspect]
     Active Substance: IDURSULFASE
     Dosage: 0.5 MILLIGRAM, 1/WEEK
     Route: 042
     Dates: start: 20120704

REACTIONS (1)
  - Epilepsy [Recovered/Resolved]

NARRATIVE: CASE EVENT DATE: 20210829
